FAERS Safety Report 10882792 (Version 1)
Quarter: 2015Q1

REPORT INFORMATION
  Report Type: Spontaneous
  Country: US (occurrence: US)
  Receive Date: 20150303
  Receipt Date: 20150303
  Transmission Date: 20150721
  Serious: Yes (Hospitalization, Congenital Anomaly, Other)
  Sender: FDA-Public Use
  Company Number: US-APOTEX-2015AP006968

PATIENT
  Age: 0 Day
  Sex: Male

DRUGS (2)
  1. PAXIL [Suspect]
     Active Substance: PAROXETINE HYDROCHLORIDE
     Indication: DEPRESSION
     Dosage: 40 MG, DAILY
     Route: 064
  2. PAXIL [Suspect]
     Active Substance: PAROXETINE HYDROCHLORIDE
     Indication: ANXIETY

REACTIONS (11)
  - Bacterial disease carrier [Unknown]
  - Patent ductus arteriosus [Recovered/Resolved]
  - Retinopathy of prematurity [Unknown]
  - Ventricular septal defect [Unknown]
  - Hydrocele [Unknown]
  - Foetal exposure during pregnancy [Unknown]
  - Talipes [Unknown]
  - Respiratory distress [Unknown]
  - Hypospadias [Unknown]
  - Atrial septal defect [Unknown]
  - Premature baby [Unknown]

NARRATIVE: CASE EVENT DATE: 19991010
